FAERS Safety Report 24664645 (Version 1)
Quarter: 2024Q4

REPORT INFORMATION
  Report Type: Spontaneous
  Country: US (occurrence: US)
  Receive Date: 20241126
  Receipt Date: 20241126
  Transmission Date: 20250115
  Serious: No
  Sender: LEO PHARM
  Company Number: US-LEO Pharma-375381

PATIENT
  Age: 38 Year
  Sex: Male

DRUGS (2)
  1. ADBRY [Suspect]
     Active Substance: TRALOKINUMAB-LDRM
     Indication: Dermatitis
     Dosage: INJECT TWO PENS INTO THE SKIN ON DAY 1, THEN 1 PEN EVERY 14 DAYS STARTING ON DAY 15
     Dates: start: 202411
  2. ADBRY [Suspect]
     Active Substance: TRALOKINUMAB-LDRM
     Indication: Dermatitis
     Dosage: INJECT TWO PENS INTO THE SKIN ON DAY 1, THEN 1 PEN EVERY 14 DAYS STARTING ON DAY 15

REACTIONS (3)
  - Injury associated with device [Unknown]
  - Circumstance or information capable of leading to medication error [Unknown]
  - Device issue [Unknown]
